FAERS Safety Report 16939275 (Version 1)
Quarter: 2019Q4

REPORT INFORMATION
  Report Type: Spontaneous
  Country: US (occurrence: US)
  Receive Date: 20191021
  Receipt Date: 20191021
  Transmission Date: 20200122
  Serious: No
  Sender: FDA-Public Use
  Company Number: US-JNJFOC-20191008013

PATIENT
  Age: 9 Month
  Sex: Female

DRUGS (1)
  1. CHILDRENS TYLENOL [Suspect]
     Active Substance: ACETAMINOPHEN
     Indication: TEETHING
     Dosage: THE RECOMENDED DOSE EVERY 4 HOURS PER DAY
     Route: 048
     Dates: start: 20190925

REACTIONS (1)
  - Drug ineffective [Unknown]
